FAERS Safety Report 7762762-5 (Version None)
Quarter: 2011Q3

REPORT INFORMATION
  Report Type: 
  Country: None (occurrence: None)
  Receive Date: 20110920
  Receipt Date: 20110912
  Transmission Date: 20111222
  Serious: Yes (Death, Life-Threatening, Hospitalization, Other)
  Sender: FDA-Public Use
  Company Number: US-ABBOTT-11P-163-0855623-00

PATIENT
  Age: 46 Year
  Sex: Female
  Weight: 50 kg

DRUGS (1)
  1. POTASSIUM CHLORIDE [Suspect]
     Indication: PRODUCT USED FOR UNKNOWN INDICATION

REACTIONS (10)
  - SMALL INTESTINAL OBSTRUCTION [None]
  - TOXICITY TO VARIOUS AGENTS [None]
  - ARRHYTHMIA [None]
  - SUICIDE ATTEMPT [None]
  - BLOOD PRESSURE INCREASED [None]
  - OVERDOSE [None]
  - HYPERKALAEMIA [None]
  - MYOGLOBINURIA [None]
  - CARDIO-RESPIRATORY ARREST [None]
  - ABDOMINAL DISTENSION [None]
